FAERS Safety Report 6354173-4 (Version None)
Quarter: 2009Q3

REPORT INFORMATION
  Report Type: 
  Country: None (occurrence: None)
  Receive Date: 20090914
  Receipt Date: 20090904
  Transmission Date: 20100115
  Serious: Yes (Other)
  Sender: FDA-Public Use
  Company Number: SG-ROCHE-654683

PATIENT
  Age: 10 Year
  Sex: Male
  Weight: 35 kg

DRUGS (6)
  1. TAMIFLU [Suspect]
     Route: 048
     Dates: start: 20090831, end: 20090904
  2. PROMETHAZINE HCL AND CODEINE [Concomitant]
     Indication: COUGH
     Dosage: DRUG NAME: BEACODYL.
     Route: 048
     Dates: start: 20090830
  3. IBUPROFEN [Concomitant]
     Route: 048
     Dates: start: 20090830
  4. PARACETAMOL [Concomitant]
     Route: 048
     Dates: start: 20090831
  5. DEXCHLORPHENIRAMINE [Concomitant]
     Route: 048
     Dates: start: 20090831
  6. SERRATIOPEPTIDASE [Concomitant]
     Route: 048
     Dates: start: 20090830

REACTIONS (1)
  - HALLUCINATION [None]
